FAERS Safety Report 9109063 (Version 7)
Quarter: 2013Q4

REPORT INFORMATION
  Report Type: Spontaneous
  Country: US (occurrence: US)
  Receive Date: 20130222
  Receipt Date: 20131231
  Transmission Date: 20140711
  Serious: Yes (Hospitalization, Disabling, Other)
  Sender: FDA-Public Use
  Company Number: US-009507513-1302USA008753

PATIENT
  Sex: Female
  Weight: 104.31 kg

DRUGS (3)
  1. NUVARING [Suspect]
     Indication: CONTRACEPTION
     Dosage: UNK
     Route: 067
     Dates: start: 2007, end: 2010
  2. NUVARING [Suspect]
     Dosage: UNK
     Route: 067
     Dates: start: 200811, end: 2010
  3. NUVARING [Suspect]
     Dosage: UNK
     Route: 067
     Dates: start: 2007, end: 200711

REACTIONS (19)
  - Necrotising fasciitis [Recovered/Resolved]
  - Caesarean section [Unknown]
  - Pulmonary embolism [Unknown]
  - Deep vein thrombosis [Unknown]
  - Maternal exposure before pregnancy [Recovered/Resolved]
  - Pre-eclampsia [Unknown]
  - Bacterial toxaemia [Unknown]
  - Anxiety [Unknown]
  - Fatigue [Unknown]
  - Cervical dysplasia [Recovered/Resolved]
  - Cervical dysplasia [Unknown]
  - Rash [Unknown]
  - Vulvovaginal candidiasis [Unknown]
  - Thrombocytopenia [Unknown]
  - Abnormal weight gain [Unknown]
  - Mitral valve stenosis [Unknown]
  - Calcinosis [Unknown]
  - Vaginal haemorrhage [Unknown]
  - Dizziness [Unknown]
